FAERS Safety Report 18795288 (Version 2)
Quarter: 2021Q1

REPORT INFORMATION
  Report Type: Spontaneous
  Country: US (occurrence: US)
  Receive Date: 20210127
  Receipt Date: 20210208
  Transmission Date: 20210419
  Serious: Yes (Other)
  Sender: FDA-Public Use
  Company Number: US-ALLERGAN-2103283US

PATIENT
  Sex: Female

DRUGS (2)
  1. LATISSE [Suspect]
     Active Substance: BIMATOPROST
     Indication: PROPHYLAXIS
     Dosage: LESS THEN 1 GTT LATISSE PER EACH UPPER EYELID LASHES AND WHAT IS LEFT SHE APPLIES AT EYEBROWS
     Dates: start: 20210107
  2. LATISSE [Suspect]
     Active Substance: BIMATOPROST
     Indication: GROWTH OF EYELASHES
     Dosage: LESS THEN 1 GTT LATISSE PER EACH UPPER EYELID LASHES AND WHAT IS LEFT SHE APPLIES AT EYEBROWS
     Dates: start: 2009, end: 2020

REACTIONS (11)
  - Off label use [Unknown]
  - Headache [Not Recovered/Not Resolved]
  - Scab [Unknown]
  - Incorrect dose administered [Unknown]
  - Eye irritation [Not Recovered/Not Resolved]
  - Vision blurred [Not Recovered/Not Resolved]
  - Skin disorder [Unknown]
  - Eye pruritus [Unknown]
  - Breast cancer [Unknown]
  - Eye pain [Unknown]
  - Inappropriate schedule of product administration [Unknown]

NARRATIVE: CASE EVENT DATE: 202011
